FAERS Safety Report 7496389-X (Version None)
Quarter: 2011Q2

REPORT INFORMATION
  Report Type: 
  Country: None (occurrence: None)
  Receive Date: 20110513
  Receipt Date: 20110429
  Transmission Date: 20111010
  Serious: Yes (Hospitalization, Other)
  Sender: FDA-Public Use
  Company Number: 2011P1006209

PATIENT
  Age: 52 Year
  Sex: Female

DRUGS (16)
  1. FISH OIL [Concomitant]
  2. MATURE [Concomitant]
  3. MULTI-VITAMIN [Concomitant]
  4. TOPAMAX [Concomitant]
  5. ULTRAM [Concomitant]
  6. IMITREX [Concomitant]
  7. WARFARIN SODIUM [Suspect]
     Indication: THROMBOSIS
     Dosage: 4 MG;QD;PO, 2 MG;TU AND SA;PO, 4 MG; 5 DAYS / WEEK;PO, 5 MG;QD;PO
     Route: 048
     Dates: start: 20110428
  8. WARFARIN SODIUM [Suspect]
     Indication: THROMBOSIS
     Dosage: 4 MG;QD;PO, 2 MG;TU AND SA;PO, 4 MG; 5 DAYS / WEEK;PO, 5 MG;QD;PO
     Route: 048
     Dates: start: 20110401, end: 20110428
  9. WARFARIN SODIUM [Suspect]
     Indication: THROMBOSIS
     Dosage: 4 MG;QD;PO, 2 MG;TU AND SA;PO, 4 MG; 5 DAYS / WEEK;PO, 5 MG;QD;PO
     Route: 048
     Dates: end: 20110301
  10. WARFARIN SODIUM [Suspect]
     Indication: THROMBOSIS
     Dosage: 4 MG;QD;PO, 2 MG;TU AND SA;PO, 4 MG; 5 DAYS / WEEK;PO, 5 MG;QD;PO
     Route: 048
     Dates: start: 20110401, end: 20110428
  11. FIBER TABLETS [Concomitant]
  12. MOTRIN [Concomitant]
  13. RANITIDINE [Concomitant]
  14. CYMBALTA [Concomitant]
  15. HEPARIN [Suspect]
     Dates: start: 20110301, end: 20110301
  16. BENADRYL [Concomitant]

REACTIONS (8)
  - PRODUCT QUALITY ISSUE [None]
  - INTESTINAL OBSTRUCTION [None]
  - PANCREATITIS [None]
  - EYE IRRITATION [None]
  - CORNEAL ABRASION [None]
  - CORNEAL INFECTION [None]
  - DRUG DISPENSING ERROR [None]
  - PROTHROMBIN TIME SHORTENED [None]
